FAERS Safety Report 25090534 (Version 1)
Quarter: 2025Q1

REPORT INFORMATION
  Report Type: Spontaneous
  Country: US (occurrence: None)
  Receive Date: 20250312
  Receipt Date: 20250312
  Transmission Date: 20250409
  Serious: Yes (Hospitalization)
  Sender: FDA-CTU
  Company Number: None

PATIENT
  Age: 80 Year
  Sex: Male

DRUGS (3)
  1. PANITUMUMAB [Suspect]
     Active Substance: PANITUMUMAB
  2. IMATINIB [Suspect]
     Active Substance: IMATINIB
  3. CETUXIMAB [Suspect]
     Active Substance: CETUXIMAB

REACTIONS (2)
  - Seizure [None]
  - Syncope [None]

NARRATIVE: CASE EVENT DATE: 20240301
